FAERS Safety Report 8066596 (Version 2)
Quarter: 2013Q1

REPORT INFORMATION
  Report Type: Spontaneous
  Country: US (occurrence: US)
  Receive Date: 20110803
  Receipt Date: 20130208
  Transmission Date: 20140127
  Serious: No
  Sender: FDA-Public Use
  Company Number: US-B.I. PHARMACEUTICALS,INC./RIDGEFIELD-2011-BP-18175BP

PATIENT
  Sex: Female

DRUGS (1)
  1. SPIRIVA HANDIHALER [Suspect]
     Indication: CHRONIC OBSTRUCTIVE PULMONARY DISEASE
     Route: 055

REACTIONS (4)
  - Anxiety disorder [Unknown]
  - Gastrointestinal disorder [Unknown]
  - Bronchitis [Unknown]
  - Product quality issue [Unknown]
